FAERS Safety Report 21003770 (Version 1)
Quarter: 2022Q2

REPORT INFORMATION
  Report Type: Spontaneous
  Country: CN (occurrence: CN)
  Receive Date: 20220624
  Receipt Date: 20220624
  Transmission Date: 20220721
  Serious: Yes (Hospitalization, Other)
  Sender: FDA-Public Use
  Company Number: CN-PFIZER INC-PV202200007793

PATIENT
  Age: 69 Year
  Sex: Female
  Weight: 46 kg

DRUGS (1)
  1. FRAGMIN [Suspect]
     Active Substance: DALTEPARIN SODIUM
     Indication: Dialysis
     Dosage: 2000 IU,  3X/WEEKLY
     Route: 042
     Dates: start: 20200606, end: 20220523

REACTIONS (7)
  - Upper gastrointestinal haemorrhage [Recovering/Resolving]
  - Blood pressure systolic increased [Unknown]
  - Haemoglobin decreased [Unknown]
  - Heart rate increased [Unknown]
  - Urine output decreased [Unknown]
  - Dizziness [Unknown]
  - Asthenia [Unknown]

NARRATIVE: CASE EVENT DATE: 20220521
